FAERS Safety Report 15893254 (Version 4)
Quarter: 2019Q1

REPORT INFORMATION
  Report Type: Report from Study
  Country: None (occurrence: DE)
  Receive Date: 20190130
  Receipt Date: 20190315
  Transmission Date: 20190417
  Serious: Yes (Life-Threatening, Hospitalization, Other)
  Sender: FDA-Public Use
  Company Number: DE-ABBVIE-19S-062-2634590-00

PATIENT
  Age: 78 Year
  Sex: Male

DRUGS (24)
  1. QUETIAPIN [Concomitant]
     Active Substance: QUETIAPINE
     Indication: PRODUCT USED FOR UNKNOWN INDICATION
  2. LAMOTRIGIN [Concomitant]
     Active Substance: LAMOTRIGINE
     Indication: PRODUCT USED FOR UNKNOWN INDICATION
  3. LAMOTRIGIN [Concomitant]
     Active Substance: LAMOTRIGINE
  4. MIRABEGRON [Concomitant]
     Active Substance: MIRABEGRON
     Indication: PRODUCT USED FOR UNKNOWN INDICATION
  5. NOVALGIN [Concomitant]
     Indication: PRODUCT USED FOR UNKNOWN INDICATION
     Dosage: AS NEEDED, UP TO 4X DAILY 1 TABLET
  6. DUODOPA [Suspect]
     Active Substance: CARBIDOPA\LEVODOPA
     Dosage: MD 6.5 ML, CRD 0.7 ML/H ED: 0.5 ML (7 HOURS)
     Route: 050
     Dates: start: 20190212
  7. KEPPRA [Concomitant]
     Active Substance: LEVETIRACETAM
     Indication: PRODUCT USED FOR UNKNOWN INDICATION
  8. RIVOTRIL [Concomitant]
     Active Substance: CLONAZEPAM
     Indication: PRODUCT USED FOR UNKNOWN INDICATION
  9. ZOLPIDEM [Concomitant]
     Active Substance: ZOLPIDEM\ZOLPIDEM TARTRATE
  10. DUODOPA [Suspect]
     Active Substance: CARBIDOPA\LEVODOPA
     Indication: PARKINSON^S DISEASE
     Dosage: MD 4.5ML; CRD 1.6 ML/H; ED 1 ML
     Route: 050
     Dates: start: 20190115
  11. DICLOFENAC [Concomitant]
     Active Substance: DICLOFENAC
     Indication: PRODUCT USED FOR UNKNOWN INDICATION
  12. MOVICOL [Concomitant]
     Active Substance: POLYETHYLENE GLYCOL 3350\POTASSIUM CHLORIDE\SODIUM BICARBONATE\SODIUM CHLORIDE
     Indication: PRODUCT USED FOR UNKNOWN INDICATION
  13. RAMIPRIL. [Concomitant]
     Active Substance: RAMIPRIL
     Indication: PRODUCT USED FOR UNKNOWN INDICATION
  14. RAMIPRIL. [Concomitant]
     Active Substance: RAMIPRIL
     Indication: PRODUCT USED FOR UNKNOWN INDICATION
  15. MOVICOL [Concomitant]
     Active Substance: POLYETHYLENE GLYCOL 3350\POTASSIUM CHLORIDE\SODIUM BICARBONATE\SODIUM CHLORIDE
  16. DUODOPA [Suspect]
     Active Substance: CARBIDOPA\LEVODOPA
     Dosage: MD 2.5ML AND A CRD OF 1.2 ML/H AND AN ED OF 0.5 ML MAX ONCE PER HOUR
     Route: 050
     Dates: start: 20190115, end: 201901
  17. MADOPAR T [Concomitant]
     Active Substance: BENSERAZIDE HYDROCHLORIDE\LEVODOPA
     Indication: PRODUCT USED FOR UNKNOWN INDICATION
     Dosage: 100/25 MG 0-1/2-1/2-3/4-1/2-1/2-1/2-1/2-0
  18. CIRCADIN [Concomitant]
     Active Substance: MELATONIN
     Indication: PRODUCT USED FOR UNKNOWN INDICATION
  19. OPICAPON [Concomitant]
     Indication: PRODUCT USED FOR UNKNOWN INDICATION
  20. RAMIPRIL/HCT [Concomitant]
     Active Substance: HYDROCHLOROTHIAZIDE\RAMIPRIL
     Indication: PRODUCT USED FOR UNKNOWN INDICATION
     Dosage: FORM STRENGTH AND UNIT DOSE: 5/25
  21. MADOPAR LT [Concomitant]
     Active Substance: BENSERAZIDE HYDROCHLORIDE\LEVODOPA
     Indication: PRODUCT USED FOR UNKNOWN INDICATION
     Dosage: FORM STRENGTH: 100/25 MG, UNIT DOSE: 50/12.5 MG
  22. ZOLPIDEM [Concomitant]
     Active Substance: ZOLPIDEM\ZOLPIDEM TARTRATE
     Indication: PRODUCT USED FOR UNKNOWN INDICATION
  23. NEUPRO [Concomitant]
     Active Substance: ROTIGOTINE
     Indication: PRODUCT USED FOR UNKNOWN INDICATION
     Route: 062
     Dates: end: 201901
  24. RIVASTIGMIN [Concomitant]
     Active Substance: RIVASTIGMINE
     Indication: PRODUCT USED FOR UNKNOWN INDICATION

REACTIONS (26)
  - Faecaloma [Unknown]
  - Mental disorder [Unknown]
  - Chest pain [Unknown]
  - Ileus [Not Recovered/Not Resolved]
  - Pericardial effusion [Unknown]
  - Peritonitis [Recovered/Resolved]
  - Ileus paralytic [Recovered/Resolved]
  - Gastric perforation [Unknown]
  - Ileus paralytic [Unknown]
  - Gastrointestinal injury [Not Recovered/Not Resolved]
  - Drug effect variable [Not Recovered/Not Resolved]
  - Diarrhoea [Not Recovered/Not Resolved]
  - Injury associated with device [Unknown]
  - Fatigue [Unknown]
  - Abdominal pain [Not Recovered/Not Resolved]
  - Device issue [Unknown]
  - Acute abdomen [Unknown]
  - Pancreatic cyst [Unknown]
  - Delirium [Recovered/Resolved]
  - Gastrointestinal disorder [Unknown]
  - Gastrointestinal stoma complication [Unknown]
  - Unintentional medical device removal [Not Recovered/Not Resolved]
  - Device dislocation [Recovered/Resolved]
  - Abdominal pain [Unknown]
  - On and off phenomenon [Recovering/Resolving]
  - Device kink [Not Recovered/Not Resolved]

NARRATIVE: CASE EVENT DATE: 201901
